FAERS Safety Report 10333815 (Version 3)
Quarter: 2014Q3

REPORT INFORMATION
  Report Type: Spontaneous
  Country: AR (occurrence: AR)
  Receive Date: 20140723
  Receipt Date: 20140805
  Transmission Date: 20150326
  Serious: Yes (Hospitalization)
  Sender: FDA-Public Use
  Company Number: AR-BIOGENIDEC-2014BI071969

PATIENT
  Age: 54 Year
  Sex: Female

DRUGS (8)
  1. DIAZEPAM. [Concomitant]
     Active Substance: DIAZEPAM
  2. CLONAZEPAM. [Concomitant]
     Active Substance: CLONAZEPAM
  3. DICLOFENAC [Concomitant]
     Active Substance: DICLOFENAC
  4. PHENOBARBITAL. [Concomitant]
     Active Substance: PHENOBARBITAL
  5. AVONEX [Suspect]
     Active Substance: INTERFERON BETA-1A
     Indication: MULTIPLE SCLEROSIS
     Route: 030
     Dates: start: 20120203, end: 201402
  6. AVONEX [Suspect]
     Active Substance: INTERFERON BETA-1A
     Indication: MULTIPLE SCLEROSIS
     Route: 030
     Dates: start: 201402
  7. CARBAMAZEPINE. [Concomitant]
     Active Substance: CARBAMAZEPINE
  8. PHENYTOIN. [Concomitant]
     Active Substance: PHENYTOIN

REACTIONS (6)
  - Injury [Unknown]
  - Bradyphrenia [Unknown]
  - Diplopia [Unknown]
  - Head injury [Not Recovered/Not Resolved]
  - Eye swelling [Unknown]
  - Vomiting [Unknown]

NARRATIVE: CASE EVENT DATE: 201407
